FAERS Safety Report 24269654 (Version 1)
Quarter: 2024Q3

REPORT INFORMATION
  Report Type: Report from Study
  Country: BR (occurrence: BR)
  Receive Date: 20240830
  Receipt Date: 20240830
  Transmission Date: 20241017
  Serious: Yes (Other)
  Sender: GLAXOSMITHKLINE
  Company Number: BR-GLAXOSMITHKLINE-BR2023AMR118950

PATIENT

DRUGS (1)
  1. BELIMUMAB [Suspect]
     Active Substance: BELIMUMAB
     Indication: Systemic lupus erythematosus
     Dosage: UNK

REACTIONS (6)
  - Systemic lupus erythematosus [Unknown]
  - Stress [Unknown]
  - Arthralgia [Unknown]
  - Inappropriate schedule of product administration [Unknown]
  - Product preparation issue [Unknown]
  - Discomfort [Unknown]
